FAERS Safety Report 23343415 (Version 3)
Quarter: 2024Q1

REPORT INFORMATION
  Report Type: Spontaneous
  Country: US (occurrence: US)
  Receive Date: 20231227
  Receipt Date: 20240313
  Transmission Date: 20240410
  Serious: No
  Sender: FDA-Public Use
  Company Number: US-PFIZER INC-PV202300202934

PATIENT
  Age: 64 Year
  Sex: Male

DRUGS (2)
  1. XELJANZ XR [Suspect]
     Active Substance: TOFACITINIB CITRATE
     Dosage: 11 MG
  2. TREMFYA [Concomitant]
     Active Substance: GUSELKUMAB
     Indication: Skin disorder
     Dosage: UNK

REACTIONS (5)
  - Pain in extremity [Unknown]
  - Arthralgia [Unknown]
  - Drug ineffective [Unknown]
  - Product dose omission issue [Unknown]
  - Product dose omission in error [Unknown]

NARRATIVE: CASE EVENT DATE: 20231201
